FAERS Safety Report 4485045-8 (Version None)
Quarter: 2004Q4

REPORT INFORMATION
  Report Type: 
  Country: None (occurrence: None)
  Receive Date: 20041022
  Receipt Date: 20041022
  Transmission Date: 20050328
  Serious: Yes (Other)
  Sender: FDA-Public Use
  Company Number: None

PATIENT
  Age: 50 Year
  Sex: Female
  Weight: 65.7716 kg

DRUGS (1)
  1. PREDNISONE [Suspect]
     Indication: RASH
     Dosage: 10 MG DAILY X 10 DAYS

REACTIONS (8)
  - BONE DISORDER [None]
  - CIRCULATORY COLLAPSE [None]
  - CONDITION AGGRAVATED [None]
  - DECREASED ACTIVITY [None]
  - DIFFICULTY IN WALKING [None]
  - RASH [None]
  - SWELLING [None]
  - WEIGHT INCREASED [None]
